FAERS Safety Report 25226283 (Version 1)
Quarter: 2025Q2

REPORT INFORMATION
  Report Type: Spontaneous
  Country: US (occurrence: US)
  Receive Date: 20250422
  Receipt Date: 20250422
  Transmission Date: 20250716
  Serious: Yes (Other)
  Sender: ABBVIE
  Company Number: US-ABBVIE-6238387

PATIENT
  Sex: Female

DRUGS (1)
  1. CYCLOSPORINE [Suspect]
     Active Substance: CYCLOSPORINE
     Indication: Dry eye
     Dosage: EMULSION, TWICE A DAY IN BOTH EYES COUPLE OF YEARS, NDC: 10702-0808-06?STRENGTH 0.05 %
     Route: 047

REACTIONS (2)
  - Cataract [Unknown]
  - Expired product administered [Not Recovered/Not Resolved]
